FAERS Safety Report 24318336 (Version 1)
Quarter: 2024Q3

REPORT INFORMATION
  Report Type: Spontaneous
  Country: US (occurrence: US)
  Receive Date: 20240913
  Receipt Date: 20240913
  Transmission Date: 20241017
  Serious: Yes (Hospitalization, Other)
  Sender: ELI LILLY AND CO
  Company Number: US-ELI_LILLY_AND_COMPANY-US202409002515

PATIENT
  Age: 84 Year
  Sex: Female

DRUGS (1)
  1. VERZENIO [Suspect]
     Active Substance: ABEMACICLIB
     Indication: Bone cancer
     Dosage: 100 MG, BID
     Route: 048

REACTIONS (5)
  - Haematological infection [Unknown]
  - Large intestinal ulcer haemorrhage [Unknown]
  - Gingival swelling [Unknown]
  - Gingival pain [Unknown]
  - Off label use [Unknown]
